FAERS Safety Report 20672784 (Version 1)
Quarter: 2022Q2

REPORT INFORMATION
  Report Type: Spontaneous
  Country: CN (occurrence: CN)
  Receive Date: 20220405
  Receipt Date: 20220405
  Transmission Date: 20220721
  Serious: Yes (Other)
  Sender: FDA-Public Use
  Company Number: CN-ABBVIE-22K-035-4344957-00

PATIENT
  Age: 37 Year
  Sex: Male
  Weight: 109 kg

DRUGS (6)
  1. VALPROATE SODIUM [Suspect]
     Active Substance: VALPROATE SODIUM
     Indication: Affective disorder
     Route: 048
     Dates: start: 20201029, end: 20210126
  2. QUETIAPINE FUMARATE [Suspect]
     Active Substance: QUETIAPINE FUMARATE
     Indication: Bipolar disorder
     Route: 048
     Dates: start: 20201029, end: 20201122
  3. QUETIAPINE FUMARATE [Suspect]
     Active Substance: QUETIAPINE FUMARATE
     Dosage: 300 MG AT NOON AND 500 MG AT NIGHT TABLET
     Route: 048
     Dates: start: 20201123, end: 20210118
  4. QUETIAPINE FUMARATE [Suspect]
     Active Substance: QUETIAPINE FUMARATE
     Dosage: 200 MG AT NOON. 600 MG AT NIGHT, EXTENDED RELEASE TABLET
     Route: 048
     Dates: start: 20210118, end: 20210127
  5. RISPERIDONE [Concomitant]
     Active Substance: RISPERIDONE
     Indication: Product used for unknown indication
     Dates: start: 20201120, end: 20210130
  6. LORAZEPAM [Concomitant]
     Active Substance: LORAZEPAM
     Indication: Product used for unknown indication
     Dates: start: 20210118, end: 20210127

REACTIONS (2)
  - Hepatocellular injury [Recovering/Resolving]
  - Drug-induced liver injury [Recovering/Resolving]
